FAERS Safety Report 17022824 (Version 1)
Quarter: 2019Q4

REPORT INFORMATION
  Report Type: Spontaneous
  Country: KR (occurrence: KR)
  Receive Date: 20191112
  Receipt Date: 20191112
  Transmission Date: 20200122
  Serious: Yes (Other)
  Sender: FDA-Public Use
  Company Number: NVSC2019KR032291

PATIENT
  Age: 27 Year
  Sex: Female

DRUGS (1)
  1. METHOTREXATE. [Suspect]
     Active Substance: METHOTREXATE
     Indication: BENIGN HYDATIDIFORM MOLE
     Dosage: 50 MG
     Route: 065

REACTIONS (4)
  - Hepatic enzyme increased [Unknown]
  - Human chorionic gonadotropin increased [Unknown]
  - Product use in unapproved indication [Unknown]
  - Nausea [Unknown]
